FAERS Safety Report 22398447 (Version 1)
Quarter: 2023Q2

REPORT INFORMATION
  Report Type: Spontaneous
  Country: IN (occurrence: IN)
  Receive Date: 20230602
  Receipt Date: 20230602
  Transmission Date: 20230721
  Serious: Yes (Hospitalization)
  Sender: FDA-Public Use
  Company Number: IN-STRIDES ARCOLAB LIMITED-2023SP008408

PATIENT
  Age: 30 Year
  Sex: Male

DRUGS (2)
  1. ALPRAZOLAM [Suspect]
     Active Substance: ALPRAZOLAM
     Indication: Mental disorder
     Dosage: 0.25 MILLIGRAM, THE PATIENT INGESTED 25 TABLETS OF ALPRAZOLAM 0.25MG TABLETS FOR SUICIDE ATTEMPT
     Route: 048
  2. GLUTARAL [Suspect]
     Active Substance: GLUTARAL
     Indication: Product used for unknown indication
     Dosage: UNK
     Route: 048

REACTIONS (8)
  - Miosis [Recovered/Resolved]
  - Hyporeflexia [Recovered/Resolved]
  - Urinary retention [Recovered/Resolved]
  - Suicide attempt [Unknown]
  - Toxicity to various agents [Unknown]
  - Intentional overdose [Unknown]
  - Intentional product misuse [Unknown]
  - Off label use [Unknown]
